FAERS Safety Report 9467438 (Version 2)
Quarter: 2013Q3

REPORT INFORMATION
  Report Type: Spontaneous
  Country: CA (occurrence: CA)
  Receive Date: 20130821
  Receipt Date: 20130827
  Transmission Date: 20140515
  Serious: Yes (Other)
  Sender: FDA-Public Use
  Company Number: PHHY2013CA089261

PATIENT
  Sex: Male

DRUGS (3)
  1. EXJADE [Suspect]
     Indication: IRON OVERLOAD
     Dosage: 2500 MG, DAILY
     Dates: start: 200904
  2. DANAZOL [Interacting]
     Dosage: UNK UKN, UNK
     Dates: start: 201305
  3. TRANSFUSIONS [Concomitant]
     Dosage: 2 U, EVERY 2 WEEKS

REACTIONS (3)
  - Drug interaction [Unknown]
  - Serum ferritin increased [Unknown]
  - Blood iron increased [Unknown]
